FAERS Safety Report 22031189 (Version 1)
Quarter: 2023Q1

REPORT INFORMATION
  Report Type: Spontaneous
  Country: CN (occurrence: CN)
  Receive Date: 20230223
  Receipt Date: 20230223
  Transmission Date: 20230418
  Serious: Yes (Life-Threatening, Other)
  Sender: FDA-Public Use
  Company Number: CN-009507513-2302CHN005527

PATIENT
  Sex: Female

DRUGS (10)
  1. CILASTATIN SODIUM\IMIPENEM [Suspect]
     Active Substance: CILASTATIN SODIUM\IMIPENEM
     Indication: Anti-infective therapy
     Dosage: 1 G, BID
     Route: 041
     Dates: start: 20211224, end: 20211227
  2. OMEPRAZOLE SODIUM [Concomitant]
     Active Substance: OMEPRAZOLE SODIUM
     Dosage: 40 MILLIGRAM
  3. VITAMIN K [Concomitant]
     Active Substance: PHYTONADIONE
     Dosage: 110 MILLIGRAM
  4. CLORURO DE POTASIO [Concomitant]
     Dosage: 10 MILLILITER
  5. B-VITAMINS [Concomitant]
     Dosage: 60.1 GRAM
  6. INSULIN HUMAN [Concomitant]
     Active Substance: INSULIN HUMAN
     Dosage: 6 UNITS
  7. INSULIN HUMAN [Concomitant]
     Active Substance: INSULIN HUMAN
     Dosage: 4 UNITS
     Route: 042
  8. AMMONIUM GLYCYRRHIZATE\CYSTEINE [Concomitant]
     Active Substance: AMMONIUM GLYCYRRHIZATE\CYSTEINE
     Dosage: 250 MILLILITER
     Route: 042
  9. ORNIDAZOLE [Concomitant]
     Active Substance: ORNIDAZOLE
     Dosage: 0.5 GRAM
  10. PHLOROGLUCINOL [Suspect]
     Active Substance: PHLOROGLUCINOL
     Dosage: 80 MILLIGRAM

REACTIONS (6)
  - Fungal sepsis [Not Recovered/Not Resolved]
  - Acute myocardial infarction [Unknown]
  - Atrial fibrillation [Unknown]
  - Cerebral infarction [Not Recovered/Not Resolved]
  - Cholecystitis acute [Not Recovered/Not Resolved]
  - Cholelithiasis [Not Recovered/Not Resolved]

NARRATIVE: CASE EVENT DATE: 20211227
